FAERS Safety Report 25437299 (Version 2)
Quarter: 2025Q2

REPORT INFORMATION
  Report Type: Report from Study
  Country: US (occurrence: US)
  Receive Date: 20250616
  Receipt Date: 20250617
  Transmission Date: 20250717
  Serious: No
  Sender: ABBVIE
  Company Number: US-ABBVIE-6327113

PATIENT
  Age: 64 Year
  Sex: Male

DRUGS (1)
  1. SKYRIZI [Suspect]
     Active Substance: RISANKIZUMAB-RZAA
     Indication: Product used for unknown indication
     Route: 058
     Dates: start: 20250202

REACTIONS (4)
  - Condition aggravated [Unknown]
  - Pruritus [Not Recovered/Not Resolved]
  - Peripheral swelling [Not Recovered/Not Resolved]
  - Erythema [Not Recovered/Not Resolved]

NARRATIVE: CASE EVENT DATE: 20250601
